FAERS Safety Report 4954528-6 (Version None)
Quarter: 2006Q1

REPORT INFORMATION
  Report Type: 
  Country: None (occurrence: None)
  Receive Date: 20060322
  Receipt Date: 20060310
  Transmission Date: 20060701
  Serious: Yes (Life-Threatening)
  Sender: FDA-Public Use
  Company Number: 2006035585

PATIENT
  Age: 70 Year
  Sex: Female
  Weight: 60 kg

DRUGS (10)
  1. CELEBREX [Suspect]
     Indication: PAIN
     Dosage: 1 TABLET (INTERVAL: EVERY DAY), ORAL
     Route: 048
     Dates: start: 20060203, end: 20060206
  2. OMEPRAZOLE [Concomitant]
  3. TIANEPTINE (TIANEPTINE) [Concomitant]
  4. SIFROL (PRAMIPEXOLE DIHYDROCHLORIDE) [Concomitant]
  5. CLONAZEPAM [Concomitant]
  6. MODOPAR (BENSERAZIDE HYDROCHLORIDE, LEVODOPA) [Concomitant]
  7. FLUINDIONE (FLUINDIONE) [Concomitant]
  8. FENTANYL [Concomitant]
  9. BACLOFEN [Concomitant]
  10. FLUNITRAZEPAM (FLUNITRAZEPAM) [Concomitant]

REACTIONS (4)
  - ANOXIA [None]
  - BRADYCARDIA [None]
  - CARDIAC ARREST [None]
  - COMA [None]
